FAERS Safety Report 5978030-8 (Version None)
Quarter: 2008Q4

REPORT INFORMATION
  Report Type: 
  Country: None (occurrence: None)
  Receive Date: 20081128
  Receipt Date: 20081110
  Transmission Date: 20090506
  Serious: Yes (Hospitalization)
  Sender: FDA-Public Use
  Company Number: 1000001767

PATIENT
  Age: 56 Year
  Sex: Female

DRUGS (4)
  1. CITALOPRAM HYDROBROMIDE [Suspect]
     Dosage: 20 MG (20 MG, 1 IN 1 D), ORAL
     Route: 048
     Dates: start: 20080528, end: 20080531
  2. CARBIUM [Suspect]
     Dosage: 1000 MG (1000 MG, 1 IN 1 D), ORAL
     Route: 048
     Dates: end: 20080615
  3. DELIX [Suspect]
     Dosage: 5 MG (5 MG, 1 IN 1 D), ORAL
     Route: 048
  4. MYLESPIN [Concomitant]

REACTIONS (7)
  - CONVULSION [None]
  - DISORIENTATION [None]
  - DRUG INTERACTION [None]
  - HIPPOCAMPAL SCLEROSIS [None]
  - HYPONATRAEMIA [None]
  - PERSONALITY CHANGE [None]
  - UNEVALUABLE EVENT [None]
